FAERS Safety Report 4722130-7 (Version None)
Quarter: 2005Q3

REPORT INFORMATION
  Report Type: 
  Country: None (occurrence: None)
  Receive Date: 20050722
  Receipt Date: 20040728
  Transmission Date: 20060218
  Serious: Yes (Other)
  Sender: FDA-Public Use
  Company Number: US-GLAXOSMITHKLINE-A0520492A

PATIENT
  Sex: Male
  Weight: 111.4 kg

DRUGS (12)
  1. AVANDIA [Suspect]
     Dosage: 8MG PER DAY
     Route: 048
     Dates: start: 19990628, end: 20000925
  2. GLYBURIDE [Concomitant]
     Route: 048
  3. ASPIRIN [Concomitant]
     Dosage: 81MG PER DAY
     Route: 048
  4. PRINIVIL [Concomitant]
     Dosage: 10MG PER DAY
     Route: 048
  5. LIPITOR [Concomitant]
     Dosage: 20MG PER DAY
     Route: 048
  6. MULTI-VITAMIN [Concomitant]
     Dosage: 1TAB PER DAY
     Route: 048
  7. CARDURA [Concomitant]
     Dosage: 8MG PER DAY
     Route: 048
  8. SYNTHROID [Concomitant]
     Dosage: .1MG PER DAY
     Route: 048
  9. LOPRESSOR [Concomitant]
     Dosage: 25MG TWICE PER DAY
     Route: 048
  10. LASIX [Concomitant]
     Dosage: 40MG PER DAY
     Route: 048
  11. GLUCOPHAGE [Concomitant]
     Route: 048
     Dates: end: 19980101
  12. REZULIN [Concomitant]
     Route: 048
     Dates: start: 19980722, end: 19990628

REACTIONS (1)
  - CARDIAC FAILURE CONGESTIVE [None]
